FAERS Safety Report 24133510 (Version 1)
Quarter: 2024Q3

REPORT INFORMATION
  Report Type: Spontaneous
  Country: NL (occurrence: NL)
  Receive Date: 20240724
  Receipt Date: 20240724
  Transmission Date: 20241017
  Serious: Yes (Other)
  Sender: PFIZER
  Company Number: None

PATIENT
  Age: 57 Year
  Sex: Male
  Weight: 72 kg

DRUGS (1)
  1. PANTOPRAZOLE [Suspect]
     Active Substance: PANTOPRAZOLE
     Indication: Dyspepsia
     Dosage: 40 MILLIGRAM, QD
     Dates: start: 20230901, end: 20240618

REACTIONS (4)
  - Erectile dysfunction [Not Recovered/Not Resolved]
  - Pruritus [Unknown]
  - Dizziness [Unknown]
  - Libido decreased [Not Recovered/Not Resolved]
